FAERS Safety Report 16540482 (Version 1)
Quarter: 2019Q3

REPORT INFORMATION
  Report Type: Spontaneous
  Country: US (occurrence: US)
  Receive Date: 20190708
  Receipt Date: 20190708
  Transmission Date: 20191004
  Serious: Yes (Other)
  Sender: FDA-Public Use
  Company Number: US-PFIZER INC-2019285778

PATIENT
  Age: 96 Year
  Sex: Female

DRUGS (1)
  1. XELJANZ XR [Suspect]
     Active Substance: TOFACITINIB CITRATE
     Dosage: 11 MG, UNK
     Dates: start: 201906

REACTIONS (4)
  - Rheumatoid arthritis [Unknown]
  - Ligament sprain [Unknown]
  - Joint swelling [Unknown]
  - Pain [Unknown]
